FAERS Safety Report 9207100 (Version 2)
Quarter: 2013Q2

REPORT INFORMATION
  Report Type: Spontaneous
  Country: US (occurrence: US)
  Receive Date: 20130403
  Receipt Date: 20130508
  Transmission Date: 20140414
  Serious: Yes (Hospitalization)
  Sender: FDA-Public Use
  Company Number: US-BAYER-2013-039519

PATIENT
  Age: 48 Year
  Sex: Female

DRUGS (14)
  1. YASMIN [Suspect]
     Indication: ACNE
     Dosage: UNK
     Dates: start: 200808
  2. YASMIN [Suspect]
     Indication: MENSTRUAL CYCLE MANAGEMENT
  3. ALLEGRA-D [Concomitant]
     Dosage: 60-120MG EVERY 12 HOURS AS NEEDED
     Dates: start: 20081213
  4. ZITHROMAX [Concomitant]
     Dosage: 250 MG, UNK
     Dates: start: 20081213
  5. DIFLUCAN [Concomitant]
     Dosage: UNK
     Dates: start: 20081213
  6. PROMETHAZINE - CODEINE [CODEINE PHOSPHATE,PROMETHAZINE HYDROCHLORI [Concomitant]
     Dosage: 6.25-10 MG/5 ML, 1 TEASPOON EVERY SIX HOURS AS NEEDED
     Dates: start: 20091209
  7. IBUPROFEN [Concomitant]
     Dosage: UNK
     Dates: start: 20080929
  8. MULTIVITAMIN [Concomitant]
     Dosage: DAILY
     Dates: start: 20080924
  9. HYDROCORTISON [HYDROCORTISONE] [Concomitant]
     Dosage: 10 %, UNK ONCE AS NEEDED
     Route: 061
     Dates: start: 20080924
  10. PROVERA [Concomitant]
  11. ROBITUSSIN A C [CODEINE PHOSPHATE,GUAIFENESIN,PHENIRAMINE MALEATE] [Concomitant]
  12. PROTONIX [Concomitant]
  13. ZOLOFT [Concomitant]
  14. LORAZEPAM [Concomitant]

REACTIONS (7)
  - Pulmonary embolism [Recovered/Resolved]
  - Injury [Recovered/Resolved]
  - Pain [Recovered/Resolved]
  - Emotional distress [None]
  - Pain [None]
  - Fear [None]
  - Anxiety [None]
